FAERS Safety Report 9333502 (Version 1)
Quarter: 2013Q2

REPORT INFORMATION
  Report Type: Spontaneous
  Country: US (occurrence: None)
  Receive Date: 20130604
  Receipt Date: 20130604
  Transmission Date: 20140414
  Serious: Yes (Hospitalization, Other)
  Sender: FDA-Public Use
  Company Number: 2013AP005646

PATIENT
  Age: 80 Year
  Sex: Male

DRUGS (4)
  1. OLANZAPINE [Suspect]
     Indication: BIPOLAR DISORDER
  2. ASPIRIN [Concomitant]
  3. AMLODIPINE [Concomitant]
  4. INSULIN [Concomitant]

REACTIONS (5)
  - Hypothermia [None]
  - Sepsis [None]
  - Dyspnoea [None]
  - Mental status changes [None]
  - Heart rate decreased [None]
